FAERS Safety Report 24944510 (Version 1)
Quarter: 2025Q1

REPORT INFORMATION
  Report Type: Spontaneous
  Country: FR (occurrence: FR)
  Receive Date: 20250208
  Receipt Date: 20250208
  Transmission Date: 20250409
  Serious: Yes (Death, Other)
  Sender: AMGEN
  Company Number: FR-AMGEN-FRASP2025023874

PATIENT
  Age: 52 Year

DRUGS (13)
  1. BLINATUMOMAB [Suspect]
     Active Substance: BLINATUMOMAB
     Indication: B precursor type acute leukaemia
     Dosage: 9 MICROGRAM, QD (FOR 7 DAYS) (STARTED AT DAY 5)
     Route: 040
  2. BLINATUMOMAB [Suspect]
     Active Substance: BLINATUMOMAB
     Dosage: 28 MICROGRAM, QD (FOR 21 DAYS)
     Route: 040
  3. BLINATUMOMAB [Suspect]
     Active Substance: BLINATUMOMAB
     Route: 040
  4. PONATINIB [Suspect]
     Active Substance: PONATINIB
     Indication: B precursor type acute leukaemia
     Dosage: 30 MILLIGRAM, QD
     Route: 048
  5. CYCLOPHOSPHAMIDE [Concomitant]
     Active Substance: CYCLOPHOSPHAMIDE
     Indication: B precursor type acute leukaemia
     Dosage: 300 MILLIGRAM/SQ. METER, BID (DAY 1 TO DAY 3)
     Route: 065
  6. VINCRISTINE [Concomitant]
     Active Substance: VINCRISTINE
     Indication: B precursor type acute leukaemia
     Route: 065
  7. DOXORUBICIN [Concomitant]
     Active Substance: DOXORUBICIN
     Indication: B precursor type acute leukaemia
     Dosage: 25 MILLIGRAM/SQ. METER, BID (IN CONTINUOUS INFUSION D4)
     Route: 065
  8. DEXAMETHASONE [Concomitant]
     Active Substance: DEXAMETHASONE
     Indication: B precursor type acute leukaemia
     Route: 048
  9. METHOTREXATE [Concomitant]
     Active Substance: METHOTREXATE
     Indication: B precursor type acute leukaemia
     Route: 029
  10. METHOTREXATE [Concomitant]
     Active Substance: METHOTREXATE
     Route: 029
  11. CYTARABINE [Concomitant]
     Active Substance: CYTARABINE
     Indication: B precursor type acute leukaemia
     Route: 029
  12. DEPO-MEDROL [Concomitant]
     Active Substance: METHYLPREDNISOLONE ACETATE
     Indication: B precursor type acute leukaemia
     Route: 029
  13. MICAFUNGIN [Concomitant]
     Active Substance: MICAFUNGIN SODIUM
     Indication: Antifungal prophylaxis

REACTIONS (4)
  - Death [Fatal]
  - Dilated cardiomyopathy [Unknown]
  - Bone marrow leukaemic cell infiltration [Unknown]
  - Gene mutation [Unknown]
